FAERS Safety Report 4740128-X (Version None)
Quarter: 2005Q3

REPORT INFORMATION
  Report Type: 
  Country: None (occurrence: None)
  Receive Date: 20050810
  Receipt Date: 20050202
  Transmission Date: 20060218
  Serious: No
  Sender: FDA-Public Use
  Company Number: US-GLAXOSMITHKLINE-A0543507A

PATIENT
  Age: 62 Year
  Sex: Female

DRUGS (3)
  1. PAXIL [Suspect]
     Dosage: 5MG TWICE PER DAY
     Route: 048
  2. PRILOSEC [Concomitant]
  3. ONE A DAY VITAMIN [Concomitant]

REACTIONS (3)
  - DIARRHOEA [None]
  - INSOMNIA [None]
  - SOMNOLENCE [None]
